FAERS Safety Report 7095647 (Version 2)
Quarter: 2013Q1

REPORT INFORMATION
  Report Type: Spontaneous
  Country: FR (occurrence: None)
  Receive Date: 20090814
  Receipt Date: 20130221
  Transmission Date: 20140127
  Serious: Yes (Hospitalization)
  Sender: FDA-Public Use
  Company Number: MPS1-1000204

PATIENT
  Age: 6 Year
  Sex: Male
  Weight: 18 kg

DRUGS (2)
  1. ALDURAZYME [Suspect]
     Indication: MUCOPOLYSACCHARIDOSIS I
     Route: 042
     Dates: start: 20050510
  2. NICARDIPINE HYDROCHLORIDE [Concomitant]

REACTIONS (18)
  - Pulmonary arterial hypertension [None]
  - Malaise [None]
  - Respiratory distress [None]
  - Drug ineffective [None]
  - Disease progression [None]
  - Hypercapnia [None]
  - Sleep apnoea syndrome [None]
  - Deafness [None]
  - Left ventricular hypertrophy [None]
  - Growth retardation [None]
  - Cerebral ventricle dilatation [None]
  - Mucopolysaccharidosis I [None]
  - Refusal of treatment by relative [None]
  - Hypoxia [None]
  - Labile hypertension [None]
  - Kyphoscoliosis [None]
  - Condition aggravated [None]
  - Cerebral atrophy [None]
